FAERS Safety Report 21314405 (Version 15)
Quarter: 2022Q4

REPORT INFORMATION
  Report Type: Report from Study
  Country: IL (occurrence: None)
  Receive Date: 20220909
  Receipt Date: 20221213
  Transmission Date: 20230113
  Serious: Yes (Hospitalization)
  Sender: FDA-Public Use
  Company Number: IL-Eisai Medical Research-EC-2022-123081

PATIENT
  Age: 72 Year
  Sex: Male
  Weight: 56.4 kg

DRUGS (8)
  1. LENVATINIB [Suspect]
     Active Substance: LENVATINIB
     Indication: Squamous cell carcinoma of head and neck
     Route: 048
     Dates: start: 20220711, end: 20220831
  2. LENVATINIB [Suspect]
     Active Substance: LENVATINIB
     Route: 048
     Dates: start: 20220912, end: 20221018
  3. PEMBROLIZUMAB [Suspect]
     Active Substance: PEMBROLIZUMAB
     Indication: Squamous cell carcinoma of head and neck
     Route: 041
     Dates: start: 20220711, end: 20220711
  4. PEMBROLIZUMAB [Suspect]
     Active Substance: PEMBROLIZUMAB
     Route: 041
     Dates: start: 20220801, end: 20220822
  5. PEMBROLIZUMAB [Suspect]
     Active Substance: PEMBROLIZUMAB
     Route: 041
     Dates: start: 20220912, end: 20221003
  6. ASPIRIN [Concomitant]
     Active Substance: ASPIRIN
     Dates: start: 201001
  7. METAMIZOLE [Concomitant]
     Active Substance: METAMIZOLE
     Dates: start: 202108
  8. CEPHALEXIN [Concomitant]
     Active Substance: CEPHALEXIN
     Dates: start: 20220718, end: 20220724

REACTIONS (2)
  - Hypertension [Not Recovered/Not Resolved]
  - Dysphagia [Not Recovered/Not Resolved]

NARRATIVE: CASE EVENT DATE: 20220724
